FAERS Safety Report 22121019 (Version 2)
Quarter: 2023Q2

REPORT INFORMATION
  Report Type: Spontaneous
  Country: UY (occurrence: UY)
  Receive Date: 20230321
  Receipt Date: 20230502
  Transmission Date: 20230722
  Serious: No
  Sender: FDA-Public Use
  Company Number: UY-PFIZER INC-PV202300049090

PATIENT
  Age: 12 Year
  Sex: Female

DRUGS (1)
  1. GENOTROPIN [Suspect]
     Active Substance: SOMATROPIN
     Indication: Turner^s syndrome
     Dosage: 1.5 TO 2 MG, 7 TIMES PER WEEK
     Dates: start: 20150312, end: 202303

REACTIONS (2)
  - Drug dose omission by device [Unknown]
  - Device mechanical issue [Unknown]

NARRATIVE: CASE EVENT DATE: 20230301
